FAERS Safety Report 16347453 (Version 1)
Quarter: 2019Q3

REPORT INFORMATION
  Report Type: Spontaneous
  Country: US (occurrence: US)
  Receive Date: 20190522
  Receipt Date: 20190522
  Transmission Date: 20191004
  Serious: Yes (Other)
  Sender: FDA-Public Use
  Company Number: None

PATIENT
  Age: 26 Year
  Sex: Male
  Weight: 85.5 kg

DRUGS (1)
  1. BUPRENORPHINE/NALOXONE [Suspect]
     Active Substance: BUPRENORPHINE\NALOXONE
     Route: 060
     Dates: start: 20190516, end: 20190521

REACTIONS (8)
  - Insomnia [None]
  - Product quality issue [None]
  - Product substitution issue [None]
  - Pyrexia [None]
  - Mental impairment [None]
  - Drug level below therapeutic [None]
  - Therapeutic response changed [None]
  - Nervousness [None]

NARRATIVE: CASE EVENT DATE: 20190521
